FAERS Safety Report 9323066 (Version 1)
Quarter: 2013Q2

REPORT INFORMATION
  Report Type: Spontaneous
  Country: US (occurrence: US)
  Receive Date: 20130603
  Receipt Date: 20130603
  Transmission Date: 20140414
  Serious: Yes (Disabling, Other)
  Sender: FDA-Public Use
  Company Number: CHPA2013US009146

PATIENT
  Age: 50 Year
  Sex: Female

DRUGS (5)
  1. PRIVATE LABEL STRENGTH UNKNOWN [Suspect]
     Indication: SMOKING CESSATION THERAPY
     Dosage: 1 DF, QD
     Route: 062
  2. PRIVATE LABEL STRENGTH UNKNOWN [Suspect]
     Dosage: 1 DF, QD
     Route: 062
     Dates: start: 201102, end: 201102
  3. LORATAB [Concomitant]
     Indication: PAIN
     Dosage: UNK
     Dates: start: 201305
  4. SAVELLA [Concomitant]
     Indication: MUSCLE DISORDER
     Dosage: UNK
     Dates: start: 201305
  5. BACLOFEN [Concomitant]
     Indication: MUSCLE DISORDER
     Dosage: UNK
     Dates: start: 201305

REACTIONS (4)
  - Wheelchair user [Not Recovered/Not Resolved]
  - Tibia fracture [Unknown]
  - Ankle fracture [Unknown]
  - Peroneal nerve palsy [Not Recovered/Not Resolved]
